FAERS Safety Report 10638454 (Version 5)
Quarter: 2015Q1

REPORT INFORMATION
  Report Type: Spontaneous
  Country: US (occurrence: US)
  Receive Date: 20141208
  Receipt Date: 20150116
  Transmission Date: 20150720
  Serious: Yes (Other)
  Sender: FDA-Public Use
  Company Number: US-TEVA-527713USA

PATIENT
  Age: 19 Year
  Sex: Female
  Weight: 59.02 kg

DRUGS (1)
  1. TAKE ACTION [Suspect]
     Active Substance: LEVONORGESTREL
     Indication: CONTRACEPTION
     Dosage: 1.5 MILLIGRAM DAILY;
     Route: 048
     Dates: start: 20141126, end: 20141126

REACTIONS (21)
  - Abdominal distension [Recovered/Resolved]
  - Sneezing [Recovered/Resolved]
  - Fatigue [Recovered/Resolved]
  - Nausea [Unknown]
  - Vomiting [Unknown]
  - Abdominal discomfort [Unknown]
  - White blood cell count increased [Recovered/Resolved]
  - Viral infection [Unknown]
  - Inappropriate schedule of drug administration [Unknown]
  - Heart rate increased [Recovered/Resolved]
  - Breast tenderness [Recovered/Resolved]
  - Pelvic pain [Recovered/Resolved]
  - Menstruation irregular [Recovered/Resolved]
  - Sleep disorder [Unknown]
  - Malaise [Recovered/Resolved]
  - Asthenia [Unknown]
  - Dehydration [Unknown]
  - Anxiety [Recovered/Resolved]
  - Dizziness [Recovered/Resolved]
  - Dysmenorrhoea [Recovered/Resolved]
  - Headache [Recovered/Resolved]

NARRATIVE: CASE EVENT DATE: 20141126
